FAERS Safety Report 9499623 (Version 1)
Quarter: 2013Q3

REPORT INFORMATION
  Report Type: Spontaneous
  Country: AU (occurrence: None)
  Receive Date: 20130903
  Receipt Date: 20130903
  Transmission Date: 20140515
  Serious: Yes (Other)
  Sender: FDA-Public Use
  Company Number: VAL_02697_2013

PATIENT
  Sex: Female

DRUGS (8)
  1. METOPROLOL [Suspect]
     Indication: PRODUCT USED FOR UNKNOWN INDICATION
     Dosage: DF (UNKNOWN)
  2. ACLASTA [Suspect]
     Indication: PRODUCT USED FOR UNKNOWN INDICATION
     Dosage: DF
     Route: 042
  3. ASTRIX 100-ACETYLSALICYLIC ACID [Concomitant]
  4. CALTRATE / 07357001/ UNKNOWN [Concomitant]
  5. ELOCON [Concomitant]
  6. ESCITALOPRAM [Concomitant]
  7. PERINDOPRIL [Concomitant]
  8. PANADOL OSTEO [Concomitant]

REACTIONS (7)
  - Dysphonia [None]
  - Glaucoma [None]
  - Hypercholesterolaemia [None]
  - Hypertension [None]
  - Insomnia [None]
  - Osteoporosis [None]
  - Pain [None]
